FAERS Safety Report 16644727 (Version 1)
Quarter: 2019Q3

REPORT INFORMATION
  Report Type: Spontaneous
  Country: US (occurrence: US)
  Receive Date: 20190729
  Receipt Date: 20190729
  Transmission Date: 20191004
  Serious: Yes (Other)
  Sender: FDA-Public Use
  Company Number: US-SA-2019SA200088

PATIENT
  Sex: Female

DRUGS (2)
  1. LEMTRADA [Suspect]
     Active Substance: ALEMTUZUMAB
     Indication: RELAPSING MULTIPLE SCLEROSIS
     Dosage: UNK UNK, UNK
     Route: 041
  2. LEMTRADA [Suspect]
     Active Substance: ALEMTUZUMAB
     Dosage: UNK
     Route: 041

REACTIONS (8)
  - Vomiting [Unknown]
  - Fall [Unknown]
  - Headache [Unknown]
  - Cholecystitis acute [Unknown]
  - Feeding disorder [Unknown]
  - Nausea [Unknown]
  - Murphy^s sign test [Unknown]
  - Abdominal pain upper [Unknown]
